FAERS Safety Report 7893122-4 (Version None)
Quarter: 2011Q4

REPORT INFORMATION
  Report Type: 
  Country: None (occurrence: None)
  Receive Date: 20111104
  Receipt Date: 20111022
  Transmission Date: 20120403
  Serious: Yes (Death, Hospitalization, Other)
  Sender: FDA-Public Use
  Company Number: GB-PAR PHARMACEUTICAL, INC-2011SCPR003375

PATIENT

DRUGS (4)
  1. CO-DYDRAMOL [Suspect]
     Indication: PRODUCT USED FOR UNKNOWN INDICATION
     Dosage: 16 TABLETS (8 G OF PARACETAMOL, 148 MG/KG)
     Route: 048
  2. DICLOFENAC SODIUM [Suspect]
     Indication: PRODUCT USED FOR UNKNOWN INDICATION
     Dosage: 2800 MG
     Route: 048
  3. FERROUS SULFATE TAB [Suspect]
     Indication: PRODUCT USED FOR UNKNOWN INDICATION
     Dosage: 86 TABLETS (103 MG/KG OF ELEMENTAL IRON)
     Route: 048
  4. IBUPROFEN [Suspect]
     Indication: PRODUCT USED FOR UNKNOWN INDICATION
     Dosage: 7000 MG
     Route: 048

REACTIONS (7)
  - MULTIPLE DRUG OVERDOSE [None]
  - SHOCK [None]
  - METABOLIC ACIDOSIS [None]
  - HAEMATEMESIS [None]
  - MULTI-ORGAN FAILURE [None]
  - DEATH [None]
  - ACUTE HEPATIC FAILURE [None]
